FAERS Safety Report 5086063-1 (Version None)
Quarter: 2006Q3

REPORT INFORMATION
  Report Type: 
  Country: None (occurrence: None)
  Receive Date: 20060818
  Receipt Date: 20060815
  Transmission Date: 20061208
  Serious: Yes (Hospitalization)
  Sender: FDA-Public Use
  Company Number: CTP20060023

PATIENT
  Age: 54 Year
  Sex: Female

DRUGS (2)
  1. CITALOPRAM  20 MG [Suspect]
     Indication: DEPRESSION
     Dosage: 14-30 TABS ONCE PO
     Route: 048
     Dates: start: 20030601, end: 20030601
  2. PREMPAK-C [Concomitant]

REACTIONS (10)
  - ANGLE CLOSURE GLAUCOMA [None]
  - CORNEAL OEDEMA [None]
  - DEPRESSED MOOD [None]
  - MULTIPLE DRUG OVERDOSE INTENTIONAL [None]
  - PUPIL FIXED [None]
  - RETINAL HAEMORRHAGE [None]
  - SUICIDAL IDEATION [None]
  - SUICIDE ATTEMPT [None]
  - TREATMENT NONCOMPLIANCE [None]
  - VITREOUS HAEMORRHAGE [None]
